FAERS Safety Report 6980675-3 (Version None)
Quarter: 2010Q3

REPORT INFORMATION
  Report Type: 
  Country: None (occurrence: None)
  Receive Date: 20100914
  Receipt Date: 20100909
  Transmission Date: 20110219
  Serious: Yes (Death)
  Sender: FDA-Public Use
  Company Number: US-GILEAD-2010-0031709

PATIENT
  Age: 73 Year
  Sex: Female
  Weight: 85.761 kg

DRUGS (17)
  1. LETAIRIS [Suspect]
     Indication: PULMONARY ARTERIAL HYPERTENSION
     Route: 048
     Dates: start: 20080712, end: 20100904
  2. REVATIO [Concomitant]
  3. LANOXIN [Concomitant]
  4. ALDACTONE [Concomitant]
  5. LASIX [Concomitant]
  6. PREDNISONE [Concomitant]
  7. ADVAIR DISKUS 100/50 [Concomitant]
  8. COMBIVENT [Concomitant]
  9. ZOLOFT [Concomitant]
  10. PRILOSEC [Concomitant]
  11. IRON [Concomitant]
  12. QUININE SULFATE [Concomitant]
  13. MULTI-VITAMIN [Concomitant]
  14. POTASSIUM CHLORIDE [Concomitant]
  15. MAGNESIUM [Concomitant]
  16. FLONASE [Concomitant]
  17. ASCORBIC ACID [Concomitant]

REACTIONS (1)
  - DEATH [None]
